FAERS Safety Report 7240400-8 (Version None)
Quarter: 2011Q1

REPORT INFORMATION
  Report Type: 
  Country: None (occurrence: None)
  Receive Date: 20110124
  Receipt Date: 20110119
  Transmission Date: 20110831
  Serious: Yes (Death)
  Sender: FDA-Public Use
  Company Number: US-AMGEN-USASP2011003623

PATIENT
  Age: 90 Year
  Sex: Female

DRUGS (4)
  1. NPLATE [Suspect]
     Indication: IDIOPATHIC THROMBOCYTOPENIC PURPURA
     Dosage: 60 A?G, UNK
     Dates: start: 20090709, end: 20101223
  2. NPLATE [Suspect]
     Dosage: 60 A?G, UNK
     Dates: start: 20101223
  3. CORTICOSTEROIDS [Concomitant]
     Indication: IDIOPATHIC THROMBOCYTOPENIC PURPURA
  4. COUMADIN [Concomitant]
     Indication: ATRIAL FIBRILLATION

REACTIONS (1)
  - DEATH [None]
